APPROVED DRUG PRODUCT: AMPICILLIN AND SULBACTAM
Active Ingredient: AMPICILLIN SODIUM; SULBACTAM SODIUM
Strength: EQ 2GM BASE/VIAL;EQ 1GM BASE/VIAL
Dosage Form/Route: INJECTABLE;INJECTION
Application: A065316 | Product #002
Applicant: MEDIMETRIKS PHARMACEUTICALS INC
Approved: Jun 29, 2007 | RLD: No | RS: No | Type: DISCN